FAERS Safety Report 4585005-2 (Version None)
Quarter: 2005Q1

REPORT INFORMATION
  Report Type: 
  Country: None (occurrence: None)
  Receive Date: 20050217
  Receipt Date: 20041203
  Transmission Date: 20050727
  Serious: No
  Sender: FDA-Public Use
  Company Number: US-GLAXOSMITHKLINE-A0535925A

PATIENT

DRUGS (1)
  1. WELLBUTRIN XL [Suspect]
     Indication: DRUG USE FOR UNKNOWN INDICATION
     Route: 048

REACTIONS (4)
  - CHEST DISCOMFORT [None]
  - DYSPHAGIA [None]
  - LOCALISED OEDEMA [None]
  - RASH [None]
